FAERS Safety Report 4761423-4 (Version None)
Quarter: 2005Q3

REPORT INFORMATION
  Report Type: 
  Country: None (occurrence: None)
  Receive Date: 20050901
  Receipt Date: 20050901
  Transmission Date: 20060218
  Serious: Yes (Disabling, Other)
  Sender: FDA-Public Use
  Company Number: None

PATIENT
  Age: 57 Year
  Sex: Female
  Weight: 58.9676 kg

DRUGS (2)
  1. DEPO-MEDROL [Suspect]
     Indication: SCIATICA
     Dosage: 80 % EPIDURAL
     Route: 008
     Dates: start: 20000110, end: 20000204
  2. DEPO-MEDROL [Suspect]
     Indication: SCIATICA
     Dosage: EPIDURAL
     Route: 008
     Dates: start: 20000204, end: 20000222

REACTIONS (12)
  - ABASIA [None]
  - ARACHNOID CYST [None]
  - BACK DISORDER [None]
  - BLISTER [None]
  - HEADACHE [None]
  - INCORRECT ROUTE OF DRUG ADMINISTRATION [None]
  - INSOMNIA [None]
  - NEUROPATHY PERIPHERAL [None]
  - PAIN [None]
  - SCIATICA [None]
  - SKIN BURNING SENSATION [None]
  - THERAPY NON-RESPONDER [None]
